FAERS Safety Report 12492391 (Version 1)
Quarter: 2016Q2

REPORT INFORMATION
  Report Type: Spontaneous
  Country: DE (occurrence: DE)
  Receive Date: 20160623
  Receipt Date: 20160623
  Transmission Date: 20160815
  Serious: Yes (Other)
  Sender: FDA-Public Use
  Company Number: DE-PFIZER INC-2016304583

PATIENT
  Age: 32 Year
  Sex: Female

DRUGS (5)
  1. OLANZAPINE. [Suspect]
     Active Substance: OLANZAPINE
     Indication: SCHIZOPHRENIA
     Dosage: 10 MG, 1X/DAY (0. - 37.1. GESTATIONAL WEEK)
     Route: 048
     Dates: start: 20141222, end: 20150908
  2. SERTRALINE HCL [Suspect]
     Active Substance: SERTRALINE HYDROCHLORIDE
     Indication: SCHIZOPHRENIA
     Dosage: 50 MG, 1X/DAY (10.1. - 37.1. GESTATIONAL WEEK)
     Route: 048
     Dates: start: 20150303, end: 20150908
  3. PAROXETINE. [Suspect]
     Active Substance: PAROXETINE
     Indication: SCHIZOPHRENIA
     Dosage: 40 MG, 1X/DAY (0. - 10. GESTATIONAL WEEK)
     Route: 048
     Dates: start: 20141222, end: 20150302
  4. RISPERIDON [Suspect]
     Active Substance: RISPERIDONE
     Indication: SCHIZOPHRENIA
     Dosage: 1 MG, 1X/DAY (0. - 37.1. GESTATIONAL WEEK)
     Route: 048
     Dates: start: 20141222, end: 20150908
  5. VITAVERLAN [Concomitant]
     Indication: PROPHYLAXIS OF NEURAL TUBE DEFECT
     Dosage: 0.4 MG, DAILY (3.3. - 37.1. GESTATIONAL WEEK)
     Route: 048

REACTIONS (1)
  - Gestational diabetes [Recovered/Resolved]
